FAERS Safety Report 10946651 (Version 1)
Quarter: 2015Q1

REPORT INFORMATION
  Report Type: Spontaneous
  Country: IT (occurrence: IT)
  Receive Date: 20150323
  Receipt Date: 20150323
  Transmission Date: 20150721
  Serious: Yes (Hospitalization)
  Sender: FDA-Public Use
  Company Number: IT-009507513-1502ITA009867

PATIENT
  Age: 8 Year
  Sex: Male

DRUGS (3)
  1. SINGULAIR [Suspect]
     Active Substance: MONTELUKAST SODIUM
     Indication: ASTHMA
     Dosage: 5 MG, DAILY
     Route: 048
     Dates: start: 20141113, end: 20150110
  2. FLUTICASONE PROPIONATE. [Concomitant]
     Active Substance: FLUTICASONE PROPIONATE
     Dosage: CYCLIC FOR PERIODS OF 7-10 DAYS
  3. ALBUTEROL. [Concomitant]
     Active Substance: ALBUTEROL
     Dosage: CYCLIC FOR PERIODS OF 7-10 DAYS

REACTIONS (4)
  - Epididymitis [None]
  - Henoch-Schonlein purpura [Recovering/Resolving]
  - Vasculitis [Recovering/Resolving]
  - Proteinuria [None]

NARRATIVE: CASE EVENT DATE: 20150112
